FAERS Safety Report 8986529 (Version 4)
Quarter: 2013Q2

REPORT INFORMATION
  Report Type: Spontaneous
  Country: JP (occurrence: JP)
  Receive Date: 20121226
  Receipt Date: 20130412
  Transmission Date: 20140414
  Serious: Yes (Life-Threatening, Hospitalization, Disabling, Other)
  Sender: FDA-Public Use
  Company Number: PHHY2012JP118951

PATIENT
  Age: 28 Year
  Sex: Female
  Weight: 44 kg

DRUGS (3)
  1. RITALIN [Suspect]
     Indication: DEPRESSION
     Dosage: 20 MG, DAILY
     Route: 048
     Dates: start: 200603
  2. RITALIN [Suspect]
     Dosage: 80 MG, DAILY (IN DOSES OF 20MG PER TIME)
     Route: 048
     Dates: end: 200712
  3. RITALIN [Suspect]
     Dosage: OVERDOSE
     Dates: start: 20110223

REACTIONS (19)
  - Suicidal ideation [Recovered/Resolved with Sequelae]
  - Spinal cord injury [Recovered/Resolved with Sequelae]
  - Spinal compression fracture [Unknown]
  - Fall [Recovered/Resolved with Sequelae]
  - Suicide attempt [Recovered/Resolved with Sequelae]
  - Psychotic disorder [Not Recovered/Not Resolved]
  - Hallucination, auditory [Not Recovered/Not Resolved]
  - Abulia [Unknown]
  - Flashback [Unknown]
  - Insomnia [Unknown]
  - Persecutory delusion [Not Recovered/Not Resolved]
  - Illusion [Unknown]
  - Affect lability [Unknown]
  - Drug abuse [Unknown]
  - Drug dependence [Unknown]
  - Overdose [Unknown]
  - Muscular weakness [Not Recovered/Not Resolved]
  - Feeling abnormal [Unknown]
  - Fatigue [Recovered/Resolved]
